FAERS Safety Report 6318602-4 (Version None)
Quarter: 2009Q3

REPORT INFORMATION
  Report Type: 
  Country: None (occurrence: None)
  Receive Date: 20090821
  Receipt Date: 20090812
  Transmission Date: 20100115
  Serious: Yes (Other)
  Sender: FDA-Public Use
  Company Number: US-ELI_LILLY_AND_COMPANY-US200907004224

PATIENT
  Sex: Male
  Weight: 104.31 kg

DRUGS (4)
  1. BYETTA [Suspect]
     Indication: TYPE 2 DIABETES MELLITUS
     Dosage: 5 UG, UNK
     Route: 058
     Dates: start: 20070501, end: 20070501
  2. BYETTA [Suspect]
     Dosage: 5 UG, 2/D
     Route: 058
     Dates: start: 20090810
  3. JANUVIA [Concomitant]
  4. METFORMIN HCL [Concomitant]

REACTIONS (7)
  - ATRIAL FLUTTER [None]
  - BLOOD GLUCOSE INCREASED [None]
  - CARDIAC VENTRICULAR DISORDER [None]
  - FALL [None]
  - HYPOGLYCAEMIA [None]
  - MALAISE [None]
  - MOBILITY DECREASED [None]
